FAERS Safety Report 15879440 (Version 1)
Quarter: 2019Q1

REPORT INFORMATION
  Report Type: Spontaneous
  Country: US (occurrence: US)
  Receive Date: 20190103
  Receipt Date: 20190103
  Transmission Date: 20190417
  Serious: No
  Sender: FDA-Public Use
  Company Number: None

PATIENT
  Age: 64 Year
  Sex: Male

DRUGS (3)
  1. NIVOLUMAB [Suspect]
     Active Substance: NIVOLUMAB
  2. ETOPOSIDE. [Suspect]
     Active Substance: ETOPOSIDE
  3. CARBOPLATIN. [Suspect]
     Active Substance: CARBOPLATIN

REACTIONS (5)
  - Seizure [None]
  - Oxygen saturation decreased [None]
  - Loss of consciousness [None]
  - Asthenia [None]
  - Chest discomfort [None]

NARRATIVE: CASE EVENT DATE: 20181221
